FAERS Safety Report 19175060 (Version 2)
Quarter: 2021Q2

REPORT INFORMATION
  Report Type: Report from Study
  Country: BE (occurrence: BE)
  Receive Date: 20210423
  Receipt Date: 20210507
  Transmission Date: 20210717
  Serious: Yes (Death, Hospitalization)
  Sender: FDA-Public Use
  Company Number: BE-BAYER-2020-271135

PATIENT
  Age: 69 Year
  Sex: Male

DRUGS (8)
  1. INDERAL [Suspect]
     Active Substance: PROPRANOLOL HYDROCHLORIDE
     Indication: TREMOR
     Dosage: UNK
  2. LEVOCETIRIZINE [Concomitant]
     Active Substance: LEVOCETIRIZINE
     Indication: DERMATITIS ALLERGIC
     Dosage: UNK
     Dates: start: 20210309
  3. XYZALL [Concomitant]
     Active Substance: LEVOCETIRIZINE DIHYDROCHLORIDE
     Indication: URTICARIA
     Dosage: UNK
     Dates: end: 202103
  4. BETAMETHASONE. [Concomitant]
     Active Substance: BETAMETHASONE
     Indication: SKIN DISORDER
     Dosage: UNK
  5. NEXAVAR [Suspect]
     Active Substance: SORAFENIB
     Indication: HEPATOCELLULAR CARCINOMA
     Dosage: DAILY DOSE 600 MG
     Dates: start: 20201201
  6. ZANIDIP [Suspect]
     Active Substance: LERCANIDIPINE HYDROCHLORIDE
     Dosage: UNK
  7. CO?ENALAPRIL [Suspect]
     Active Substance: ENALAPRIL MALEATE\HYDROCHLOROTHIAZIDE
     Indication: HYPERTENSION
     Dosage: UNK
  8. NEXAVAR [Suspect]
     Active Substance: SORAFENIB
     Indication: HEPATOCELLULAR CARCINOMA
     Dosage: DOSE REDUCED
     Dates: end: 20210308

REACTIONS (12)
  - Decreased appetite [None]
  - Palmar-plantar erythrodysaesthesia syndrome [Recovered/Resolved with Sequelae]
  - Off label use [None]
  - Dysphonia [Not Recovered/Not Resolved]
  - Pain in extremity [Unknown]
  - Gait disturbance [None]
  - Disturbance in attention [Recovered/Resolved]
  - Fatigue [Not Recovered/Not Resolved]
  - Decreased appetite [Not Recovered/Not Resolved]
  - Death [Fatal]
  - Fatigue [Not Recovered/Not Resolved]
  - Pruritus [Recovered/Resolved with Sequelae]

NARRATIVE: CASE EVENT DATE: 20201201
